FAERS Safety Report 6329383-2 (Version None)
Quarter: 2009Q3

REPORT INFORMATION
  Report Type: 
  Country: None (occurrence: None)
  Receive Date: 20090824
  Receipt Date: 20090824
  Transmission Date: 20100115
  Serious: Yes (Hospitalization)
  Sender: FDA-Public Use
  Company Number: None

PATIENT
  Sex: Female
  Weight: 68.0396 kg

DRUGS (1)
  1. LYRICA [Suspect]

REACTIONS (6)
  - ANKLE FRACTURE [None]
  - BALANCE DISORDER [None]
  - DISORIENTATION [None]
  - ECONOMIC PROBLEM [None]
  - FATIGUE [None]
  - IMPAIRED WORK ABILITY [None]
